FAERS Safety Report 16756546 (Version 3)
Quarter: 2019Q3

REPORT INFORMATION
  Report Type: Spontaneous
  Country: FR (occurrence: FR)
  Receive Date: 20190829
  Receipt Date: 20190916
  Transmission Date: 20191005
  Serious: Yes (Life-Threatening)
  Sender: FDA-Public Use
  Company Number: FR-MYLANLABS-2019M1081300

PATIENT
  Age: 65 Year
  Sex: Male
  Weight: 120 kg

DRUGS (7)
  1. AMIKACIN. [Suspect]
     Active Substance: AMIKACIN
     Indication: OSTEITIS
     Dosage: UNK
     Route: 042
     Dates: start: 20190123, end: 20190123
  2. PIPERACILLIN/TAZOBACTAM [Suspect]
     Active Substance: PIPERACILLIN SODIUM\TAZOBACTAM SODIUM
     Indication: OSTEITIS
     Dosage: 20 OT, UNK
     Route: 042
     Dates: start: 20190123, end: 20190127
  3. CUBICIN [Suspect]
     Active Substance: DAPTOMYCIN
     Indication: OSTEITIS
     Dosage: 1200 GRAM
     Route: 042
     Dates: start: 20190123, end: 20190123
  4. GENTAMICIN SULFATE. [Suspect]
     Active Substance: GENTAMICIN SULFATE
     Indication: OSTEITIS
     Dosage: 450 MILLIGRAM
     Route: 042
     Dates: start: 20190123, end: 20190123
  5. IOMERON [Suspect]
     Active Substance: IOMEPROL
     Indication: SCAN WITH CONTRAST
     Dosage: UNK
     Route: 042
     Dates: start: 20190124, end: 20190124
  6. PIPERACILLIN/TAZOBACTAM [Suspect]
     Active Substance: PIPERACILLIN SODIUM\TAZOBACTAM SODIUM
     Dosage: 12 OT, UNK
     Route: 042
  7. VANCOMYCIN SANDOZ [Suspect]
     Active Substance: VANCOMYCIN
     Indication: OSTEITIS
     Dosage: 6 G (3 G, 3 G IN BOLUS)
     Route: 042
     Dates: start: 20190123, end: 20190125

REACTIONS (2)
  - Condition aggravated [Unknown]
  - Acute kidney injury [Recovered/Resolved]

NARRATIVE: CASE EVENT DATE: 20190125
